FAERS Safety Report 4511691-9 (Version None)
Quarter: 2004Q4

REPORT INFORMATION
  Report Type: 
  Country: None (occurrence: None)
  Receive Date: 20041123
  Receipt Date: 20041123
  Transmission Date: 20050328
  Serious: Yes (Hospitalization)
  Sender: FDA-Public Use
  Company Number: None

PATIENT
  Age: 8 Year
  Sex: Male

DRUGS (2)
  1. TACROLIMUS [Suspect]
     Indication: IMMUNOSUPPRESSANT DRUG THERAPY
     Dosage: IV
     Route: 042
     Dates: start: 20040320, end: 20040321
  2. TACROLIMUS [Suspect]
     Indication: LIVER TRANSPLANT
     Dosage: IV
     Route: 042
     Dates: start: 20040320, end: 20040321

REACTIONS (2)
  - COMPLICATIONS OF TRANSPLANT SURGERY [None]
  - CONVULSION [None]
